FAERS Safety Report 6547263-4 (Version None)
Quarter: 2010Q1

REPORT INFORMATION
  Report Type: 
  Country: None (occurrence: None)
  Receive Date: 20100122
  Receipt Date: 20090817
  Transmission Date: 20100710
  Serious: No
  Sender: FDA-Public Use
  Company Number: US-BAUSCH-2009BL004143

PATIENT
  Age: 89 Year
  Sex: Female

DRUGS (3)
  1. ZYLET [Suspect]
     Indication: EYE INFECTION
     Route: 047
     Dates: start: 20090806, end: 20090816
  2. ZYLET [Suspect]
     Route: 047
     Dates: start: 20090806, end: 20090816
  3. SYSTANE [Concomitant]
     Route: 047
     Dates: start: 20090501

REACTIONS (3)
  - BURNING SENSATION [None]
  - EYE DISORDER [None]
  - EYELID OEDEMA [None]
